FAERS Safety Report 18570989 (Version 1)
Quarter: 2020Q4

REPORT INFORMATION
  Report Type: Spontaneous
  Country: US (occurrence: US)
  Receive Date: 20201202
  Receipt Date: 20201202
  Transmission Date: 20210114
  Serious: No
  Sender: FDA-Public Use
  Company Number: US-NOVEN PHARMACEUTICALS, INC.-2020US003813

PATIENT
  Sex: Female

DRUGS (4)
  1. VITAMINS NOS [Concomitant]
     Active Substance: VITAMINS
     Indication: PRODUCT USED FOR UNKNOWN INDICATION
     Dosage: UNK
  2. AGX ESTRADIOL FOR MINIVELLE [Suspect]
     Active Substance: ESTRADIOL
     Indication: HYSTERECTOMY
     Dosage: 0.1 MG; 1 PATCH EVERY 3-4 DAYS
     Route: 062
     Dates: start: 202002, end: 202004
  3. AGX ESTRADIOL FOR MINIVELLE [Suspect]
     Active Substance: ESTRADIOL
     Indication: OFF LABEL USE
     Dosage: 0.1 MG; 1 PATCH EVERY 3-4 DAYS
     Route: 062
     Dates: start: 2013
  4. AGX ESTRADIOL FOR MINIVELLE [Suspect]
     Active Substance: ESTRADIOL
     Indication: OOPHORECTOMY

REACTIONS (5)
  - Application site inflammation [Unknown]
  - Application site pruritus [Unknown]
  - Application site erythema [Unknown]
  - Product adhesion issue [Recovered/Resolved]
  - Off label use [Recovered/Resolved]
